FAERS Safety Report 5367911-4 (Version None)
Quarter: 2007Q2

REPORT INFORMATION
  Report Type: 
  Country: None (occurrence: None)
  Receive Date: 20070622
  Receipt Date: 20070612
  Transmission Date: 20071010
  Serious: Yes (Hospitalization)
  Sender: FDA-Public Use
  Company Number: JP-BOEHRINGER INGELHEIM PHARMACEUTICALS, INC.-2007-BP-09056NB

PATIENT
  Sex: Female
  Weight: 48 kg

DRUGS (2)
  1. BI-SIFROL TABLETS [Suspect]
     Indication: PARKINSON'S DISEASE
     Route: 048
     Dates: start: 20040217
  2. MOHRUS TAPE (KETOPROFEN) [Concomitant]
     Indication: ARTHRALGIA
     Route: 062
     Dates: start: 20040301

REACTIONS (3)
  - CEREBROVASCULAR ACCIDENT [None]
  - OEDEMA PERIPHERAL [None]
  - PNEUMONIA [None]
